FAERS Safety Report 21013305 (Version 2)
Quarter: 2024Q3

REPORT INFORMATION
  Report Type: Spontaneous
  Country: US (occurrence: US)
  Receive Date: 20220627
  Receipt Date: 20240919
  Transmission Date: 20241016
  Serious: No
  Sender: SANOFI AVENTIS
  Company Number: US-SA-SAC00000000012435

PATIENT
  Age: 22 Year
  Sex: Male

DRUGS (1)
  1. FABRAZYME [Suspect]
     Active Substance: AGALSIDASE BETA
     Indication: Fabry^s disease
     Dosage: 15 MG, QOW (5 AND 35 MG)
     Route: 041
     Dates: start: 20180123

REACTIONS (5)
  - Urinary hexose tetrasaccharide increased [Unknown]
  - Globotriaosylsphingosine increased [Unknown]
  - Globotriaosylceramide increased [Unknown]
  - Viral infection [Unknown]
  - Drug specific antibody present [Unknown]

NARRATIVE: CASE EVENT DATE: 20240719
